FAERS Safety Report 13243067 (Version 4)
Quarter: 2017Q3

REPORT INFORMATION
  Report Type: Spontaneous
  Country: KR (occurrence: KR)
  Receive Date: 20170216
  Receipt Date: 20170728
  Transmission Date: 20171127
  Serious: Yes (Death, Other)
  Sender: FDA-Public Use
  Company Number: KR-009507513-1702KOR006061

PATIENT
  Age: 72 Year
  Sex: Male
  Weight: 63.2 kg

DRUGS (31)
  1. EMEND (FOSAPREPITANT DIMEGLUMINE) [Suspect]
     Active Substance: FOSAPREPITANT DIMEGLUMINE
     Dosage: 150 MG, ONCE
     Route: 042
     Dates: start: 20161206, end: 20161206
  2. EMEND (FOSAPREPITANT DIMEGLUMINE) [Suspect]
     Active Substance: FOSAPREPITANT DIMEGLUMINE
     Dosage: 150 MG, ONCE
     Route: 042
     Dates: start: 20161108, end: 20161108
  3. EMEND (FOSAPREPITANT DIMEGLUMINE) [Suspect]
     Active Substance: FOSAPREPITANT DIMEGLUMINE
     Dosage: 150 MG, ONCE
     Route: 042
     Dates: start: 20161122, end: 20161122
  4. HUMEDIX DEXAMETHASONE NA PHOSPHATE [Concomitant]
     Dosage: 5 MG, QD
     Route: 042
     Dates: start: 20161108, end: 20161108
  5. 5-FUCHOONGWAE [Concomitant]
     Dosage: STRENGTH: 1000MG/20ML, CYCLE: 2, 4928MG, QD
     Route: 042
     Dates: start: 20161108, end: 20161108
  6. HUMEDIX DEXAMETHASONE NA PHOSPHATE [Concomitant]
     Indication: PROPHYLAXIS OF NAUSEA AND VOMITING
     Dosage: 5 MG, QD
     Route: 042
     Dates: start: 20161025, end: 20161025
  7. HUMEDIX DEXAMETHASONE NA PHOSPHATE [Concomitant]
     Dosage: 5 MG, QD
     Route: 042
     Dates: start: 20161226, end: 20161226
  8. EMEND (FOSAPREPITANT DIMEGLUMINE) [Suspect]
     Active Substance: FOSAPREPITANT DIMEGLUMINE
     Dosage: 150 MG, ONCE
     Route: 042
     Dates: start: 20161226, end: 20161226
  9. ALOXI [Concomitant]
     Active Substance: PALONOSETRON HYDROCHLORIDE
     Dosage: 0.25 MG, QD
     Route: 042
     Dates: start: 20161226, end: 20161226
  10. MEGACE [Concomitant]
     Active Substance: MEGESTROL ACETATE
     Indication: DECREASED APPETITE
     Dosage: 20 ML, BID
     Route: 048
     Dates: start: 2016, end: 20170125
  11. EMEND (FOSAPREPITANT DIMEGLUMINE) [Suspect]
     Active Substance: FOSAPREPITANT DIMEGLUMINE
     Dosage: 150 MG, ONCE
     Route: 042
     Dates: start: 20170124, end: 20170124
  12. 5-FUCHOONGWAE [Concomitant]
     Indication: RECTAL CANCER
     Dosage: STRENGTH: 1000MG/20ML, CYCLE: 1, 4844MG, QD
     Route: 042
     Dates: start: 20161025, end: 20161025
  13. 5-FUCHOONGWAE [Concomitant]
     Dosage: STRENGTH: 1000MG/20ML, CYCLE: 5, 5096MG, QD
     Route: 042
     Dates: start: 20161226, end: 20161226
  14. OXAPLA [Concomitant]
     Dosage: 149 MG, QD, CYCLE: 3
     Route: 042
     Dates: start: 20161122, end: 20161122
  15. OXAPLA [Concomitant]
     Dosage: 150 MG, QD, CYCLE: 4
     Route: 042
     Dates: start: 20161206, end: 20161206
  16. OXAPLA [Concomitant]
     Dosage: 115 MG, QD, CYCLE:6
     Route: 042
     Dates: start: 20170124, end: 20170124
  17. ALOXI [Concomitant]
     Active Substance: PALONOSETRON HYDROCHLORIDE
     Indication: PROPHYLAXIS OF NAUSEA AND VOMITING
     Dosage: 0.25 MG, QD
     Route: 042
     Dates: start: 20161025, end: 20161025
  18. ALOXI [Concomitant]
     Active Substance: PALONOSETRON HYDROCHLORIDE
     Dosage: 0.25 MG, QD
     Route: 042
     Dates: start: 20161108, end: 20161108
  19. ALOXI [Concomitant]
     Active Substance: PALONOSETRON HYDROCHLORIDE
     Dosage: 0.25 MG, QD
     Route: 042
     Dates: start: 20161122, end: 20161122
  20. ALOXI [Concomitant]
     Active Substance: PALONOSETRON HYDROCHLORIDE
     Dosage: 0.25 MG, QD
     Route: 042
     Dates: start: 20161206, end: 20161206
  21. ALOXI [Concomitant]
     Active Substance: PALONOSETRON HYDROCHLORIDE
     Dosage: 0.25 MG, QD
     Route: 042
     Dates: start: 20170124, end: 20170124
  22. EMEND (FOSAPREPITANT DIMEGLUMINE) [Suspect]
     Active Substance: FOSAPREPITANT DIMEGLUMINE
     Indication: PROPHYLAXIS OF NAUSEA AND VOMITING
     Dosage: 150 MG, ONCE
     Route: 042
     Dates: start: 20161025, end: 20161025
  23. OXAPLA [Concomitant]
     Indication: RECTAL CANCER
     Dosage: 147 MG, QD, CYCLE: 1
     Route: 042
     Dates: start: 20161025, end: 20161025
  24. HUMEDIX DEXAMETHASONE NA PHOSPHATE [Concomitant]
     Dosage: 5 MG, QD
     Route: 042
     Dates: start: 20170124, end: 20170124
  25. 5-FUCHOONGWAE [Concomitant]
     Dosage: STRENGTH: 1000MG/20ML, CYCLE: 3, 4900MG, QD
     Route: 042
     Dates: start: 20161122, end: 20161122
  26. OXAPLA [Concomitant]
     Dosage: 150 MG, QD, CYCLE: 2
     Route: 042
     Dates: start: 20161108, end: 20161108
  27. HUMEDIX DEXAMETHASONE NA PHOSPHATE [Concomitant]
     Dosage: 5 MG, QD
     Route: 042
     Dates: start: 20161122, end: 20161122
  28. HUMEDIX DEXAMETHASONE NA PHOSPHATE [Concomitant]
     Dosage: 5 MG, QD
     Route: 042
     Dates: start: 20161206, end: 20161206
  29. 5-FUCHOONGWAE [Concomitant]
     Dosage: STRENGTH: 1000MG/20ML, CYCLE: 4, 4956MG, QD
     Route: 042
     Dates: start: 20161206, end: 20161206
  30. 5-FUCHOONGWAE [Concomitant]
     Dosage: STRENGTH: 1000MG/20ML, CYCLE: 6, 5040MG, QD
     Route: 042
     Dates: start: 20170124, end: 20170124
  31. OXAPLA [Concomitant]
     Dosage: 116 MG, QD, CYCLE: 5
     Route: 042
     Dates: start: 20161226, end: 20161226

REACTIONS (3)
  - Acute respiratory failure [Fatal]
  - Lethargy [Recovered/Resolved]
  - Decreased appetite [Recovered/Resolved]

NARRATIVE: CASE EVENT DATE: 20161026
